FAERS Safety Report 8492702-5 (Version None)
Quarter: 2012Q3

REPORT INFORMATION
  Report Type: 
  Country: None (occurrence: None)
  Receive Date: 20120706
  Receipt Date: 20120626
  Transmission Date: 20120928
  Serious: Yes (Other)
  Sender: FDA-Public Use
  Company Number: US-SP-2012-06129

PATIENT
  Sex: Female

DRUGS (2)
  1. IMOGAM RABIES-HT [Suspect]
     Indication: IMMUNISATION
     Route: 065
     Dates: start: 20110810, end: 20110810
  2. IMOVAX RABIES I.D. [Suspect]
     Indication: IMMUNISATION
     Route: 065
     Dates: start: 20110810, end: 20110907

REACTIONS (17)
  - PYREXIA [None]
  - ECZEMA [None]
  - JOINT INJURY [None]
  - DIZZINESS [None]
  - FATIGUE [None]
  - CHILLS [None]
  - URTICARIA [None]
  - PRURITUS GENERALISED [None]
  - NAUSEA [None]
  - PAIN [None]
  - HEADACHE [None]
  - MYALGIA [None]
  - INFLUENZA LIKE ILLNESS [None]
  - INJECTION SITE PAIN [None]
  - VERTIGO [None]
  - INJECTION SITE PRURITUS [None]
  - MALAISE [None]
